FAERS Safety Report 13150625 (Version 3)
Quarter: 2017Q2

REPORT INFORMATION
  Report Type: Spontaneous
  Country: JP (occurrence: JP)
  Receive Date: 20170125
  Receipt Date: 20170609
  Transmission Date: 20170830
  Serious: Yes (Death, Life-Threatening)
  Sender: FDA-Public Use
  Company Number: JP-ACTELION-A-CH2017-148557

PATIENT
  Age: 3 Year
  Sex: Male
  Weight: 15 kg

DRUGS (13)
  1. LASIX [Concomitant]
     Active Substance: FUROSEMIDE
     Dosage: UNK
     Dates: start: 20160826, end: 20170102
  2. OPSUMIT [Suspect]
     Active Substance: MACITENTAN
     Dosage: 3 MG, QD
     Route: 048
     Dates: start: 20160902, end: 20170102
  3. VENTAVIS [Concomitant]
     Active Substance: ILOPROST
     Indication: PULMONARY ARTERIAL HYPERTENSION
     Dosage: UNK
     Dates: start: 20161020, end: 20170102
  4. ALDACTONE A [Concomitant]
     Active Substance: SPIRONOLACTONE
     Dosage: UNK
     Dates: start: 20160826, end: 20170102
  5. UPTRAVI [Suspect]
     Active Substance: SELEXIPAG
     Indication: PULMONARY ARTERIAL HYPERTENSION
     Dosage: 50 ?G, BID
     Route: 048
     Dates: start: 20161128, end: 20161204
  6. UPTRAVI [Suspect]
     Active Substance: SELEXIPAG
     Dosage: 400 ?G, BID
     Route: 048
     Dates: start: 20161226, end: 20170101
  7. UPTRAVI [Suspect]
     Active Substance: SELEXIPAG
     Dosage: 500 ?G, BID
     Route: 048
     Dates: start: 20170102, end: 20170102
  8. UPTRAVI [Suspect]
     Active Substance: SELEXIPAG
     Dosage: 100 ?G, BID
     Route: 048
     Dates: start: 20161205, end: 20161211
  9. OPSUMIT [Suspect]
     Active Substance: MACITENTAN
     Indication: PULMONARY ARTERIAL HYPERTENSION
     Dosage: 1.5 MG, QD
     Route: 048
     Dates: start: 20160831, end: 20160901
  10. REVATIO [Concomitant]
     Active Substance: SILDENAFIL CITRATE
     Dosage: UNK
     Dates: start: 20160906, end: 20170102
  11. OXYGEN. [Concomitant]
     Active Substance: OXYGEN
  12. UPTRAVI [Suspect]
     Active Substance: SELEXIPAG
     Dosage: 200 ?G, BID
     Route: 048
     Dates: start: 20161212, end: 20161218
  13. UPTRAVI [Suspect]
     Active Substance: SELEXIPAG
     Dosage: 300 ?G, BID
     Route: 048
     Dates: start: 20161219, end: 20161225

REACTIONS (8)
  - Syncope [Fatal]
  - Drug dose omission [Unknown]
  - Crying [Fatal]
  - Pulmonary hypertensive crisis [Fatal]
  - Vomiting [Unknown]
  - Condition aggravated [Fatal]
  - Haemodynamic instability [Fatal]
  - Pulmonary arterial hypertension [Fatal]

NARRATIVE: CASE EVENT DATE: 20170101
